FAERS Safety Report 5444522-3 (Version None)
Quarter: 2007Q3

REPORT INFORMATION
  Report Type: 
  Country: None (occurrence: None)
  Receive Date: 20070904
  Receipt Date: 20070904
  Transmission Date: 20080115
  Serious: Yes (Hospitalization, Other)
  Sender: FDA-Public Use
  Company Number: None

PATIENT
  Age: 20 Year
  Sex: Female
  Weight: 65.77 kg

DRUGS (11)
  1. ESOMEPRAZOLE MAGNESIUM [Suspect]
     Indication: GASTRIC ULCER
     Dosage: 40MG TWICE DAILY PO
     Route: 048
     Dates: start: 20070119, end: 20070207
  2. SIROLIMUS [Concomitant]
  3. MYCOPHENOLATE MOFETIL [Concomitant]
  4. PROMETHAZINE [Concomitant]
  5. PRAVASTATIN [Concomitant]
  6. PREDNISONE [Concomitant]
  7. HYDRALAZINE HCL [Concomitant]
  8. ATENOLOL [Concomitant]
  9. METOCLOPRAMIDE [Concomitant]
  10. POTASSIUM CHLORIDE [Concomitant]
  11. FUROSEMIDE [Concomitant]

REACTIONS (5)
  - DIARRHOEA [None]
  - FAECES DISCOLOURED [None]
  - PANCREATITIS [None]
  - RENAL FAILURE [None]
  - WAIST CIRCUMFERENCE INCREASED [None]
